FAERS Safety Report 15704682 (Version 1)
Quarter: 2018Q4

REPORT INFORMATION
  Report Type: Spontaneous
  Country: FR (occurrence: FR)
  Receive Date: 20181210
  Receipt Date: 20181210
  Transmission Date: 20190205
  Serious: Yes (Other)
  Sender: FDA-Public Use
  Company Number: FR-SA-2018SA334765

PATIENT
  Age: 80 Year
  Sex: Female

DRUGS (3)
  1. FAZOL [KETOCONAZOLE] [Concomitant]
  2. CORTISONE [Concomitant]
     Active Substance: CORTISONE\HYDROCORTISONE
     Route: 065
  3. ARAVA [Suspect]
     Active Substance: LEFLUNOMIDE
     Indication: RHEUMATOID ARTHRITIS
     Dosage: 12 YEARS AGO
     Route: 048

REACTIONS (5)
  - Gastrointestinal disorder [Recovered/Resolved]
  - Stool analysis abnormal [Recovered/Resolved]
  - Blood cholesterol increased [Recovered/Resolved]
  - Blood pressure increased [Recovered/Resolved]
  - Deafness [Recovered/Resolved]
